FAERS Safety Report 9321459 (Version 1)
Quarter: 2013Q2

REPORT INFORMATION
  Report Type: Spontaneous
  Country: AU (occurrence: None)
  Receive Date: 20130529
  Receipt Date: 20130529
  Transmission Date: 20140414
  Serious: Yes (Death)
  Sender: FDA-Public Use
  Company Number: 2013P1006237

PATIENT
  Age: 48 Year
  Sex: Male

DRUGS (8)
  1. AMPHETAMINE [Suspect]
  2. ALPRAZOLAM [Suspect]
  3. COCAINE [Suspect]
  4. METHAMPHETAMINE [Suspect]
  5. 3,4- METHYLENEDIOXYMETHAMPHETAMINE [Suspect]
  6. BUPRENORPHINE [Suspect]
  7. DIAZEPAM [Suspect]
  8. NALOXONE [Suspect]

REACTIONS (4)
  - Cardiomegaly [None]
  - Coronary artery disease [None]
  - Toxicity to various agents [None]
  - Sudden death [None]
